FAERS Safety Report 23430123 (Version 2)
Quarter: 2024Q1

REPORT INFORMATION
  Report Type: Spontaneous
  Country: CA (occurrence: CA)
  Receive Date: 20240122
  Receipt Date: 20240129
  Transmission Date: 20240410
  Serious: Yes (Death, Life-Threatening, Hospitalization, Disabling, Other)
  Sender: FDA-Public Use
  Company Number: CA-002147023-NVSC2024CA010739

PATIENT

DRUGS (4)
  1. DICLOFENAC SODIUM [Suspect]
     Active Substance: DICLOFENAC\DICLOFENAC SODIUM
     Indication: Product used for unknown indication
     Dosage: UNK
     Route: 065
  2. ADALIMUMAB [Suspect]
     Active Substance: ADALIMUMAB\ISOPROPYL ALCOHOL
     Indication: Rheumatoid arthritis
     Dosage: 20 ML
     Route: 065
  3. ADALIMUMAB [Suspect]
     Active Substance: ADALIMUMAB\ISOPROPYL ALCOHOL
     Indication: Psoriatic arthropathy
     Dosage: 40 MG
     Route: 058
  4. ADALIMUMAB [Suspect]
     Active Substance: ADALIMUMAB\ISOPROPYL ALCOHOL
     Dosage: UNK
     Route: 065

REACTIONS (33)
  - Lupus-like syndrome [Fatal]
  - Lower respiratory tract infection [Fatal]
  - Pneumonia [Fatal]
  - Porphyria acute [Fatal]
  - Pulmonary fibrosis [Fatal]
  - Retinitis [Fatal]
  - Rheumatoid arthritis [Fatal]
  - Systemic lupus erythematosus [Fatal]
  - Pancreatitis [Fatal]
  - Psoriatic arthropathy [Fatal]
  - Rectal haemorrhage [Fatal]
  - Type 2 diabetes mellitus [Fatal]
  - Muscle injury [Fatal]
  - Lower limb fracture [Fatal]
  - Lung disorder [Fatal]
  - Malaise [Fatal]
  - Musculoskeletal pain [Fatal]
  - Obesity [Fatal]
  - Osteoarthritis [Fatal]
  - Osteoporosis [Fatal]
  - Peripheral venous disease [Fatal]
  - Sleep disorder [Fatal]
  - Stomatitis [Fatal]
  - Weight fluctuation [Fatal]
  - Wound infection [Fatal]
  - Night sweats [Fatal]
  - Oedema peripheral [Fatal]
  - Paraesthesia [Fatal]
  - Pyrexia [Fatal]
  - Medication error [Fatal]
  - Off label use [Fatal]
  - Sciatica [Fatal]
  - Maternal exposure during pregnancy [Fatal]
